FAERS Safety Report 23817504 (Version 2)
Quarter: 2025Q1

REPORT INFORMATION
  Report Type: Spontaneous
  Country: US (occurrence: US)
  Receive Date: 20240505
  Receipt Date: 20250129
  Transmission Date: 20250409
  Serious: Yes (Hospitalization)
  Sender: SANOFI AVENTIS
  Company Number: US-SA-SAC20240430000405

PATIENT
  Age: 91 Year
  Sex: Female
  Weight: 63.5 kg

DRUGS (7)
  1. DUPIXENT [Suspect]
     Active Substance: DUPILUMAB
     Indication: Dermatitis atopic
     Dosage: 300 MG, QOW
     Route: 058
     Dates: end: 2024
  2. DUPIXENT [Suspect]
     Active Substance: DUPILUMAB
     Indication: Dermatitis allergic
  3. LASIX [Concomitant]
     Active Substance: FUROSEMIDE
  4. LEVOTHYROXINE SODIUM [Concomitant]
     Active Substance: LEVOTHYROXINE SODIUM
  5. ELIQUIS [Concomitant]
     Active Substance: APIXABAN
  6. PREDNISONE [Concomitant]
     Active Substance: PREDNISONE
  7. OCUVITE ADULT 50+ [ASCORBIC ACID;CUPRIC OXIDE;OMEGA-3 FATTY ACIDS;TOCO [Concomitant]

REACTIONS (1)
  - Cardiac pacemaker insertion [Unknown]

NARRATIVE: CASE EVENT DATE: 20240101
